FAERS Safety Report 6173372-8 (Version None)
Quarter: 2009Q2

REPORT INFORMATION
  Report Type: 
  Country: None (occurrence: None)
  Receive Date: 20090428
  Receipt Date: 20090415
  Transmission Date: 20091009
  Serious: Yes (Hospitalization)
  Sender: FDA-Public Use
  Company Number: GXKR2009NL04657

PATIENT
  Sex: Male
  Weight: 115 kg

DRUGS (9)
  1. CARBAMAZEPINE [Suspect]
     Indication: BIPOLAR DISORDER
  2. CITALOPRAM HYDROBROMIDE [Suspect]
  3. VALPROATE (NGX) (VALPROATE) [Suspect]
     Indication: BIPOLAR DISORDER
     Dosage: 1350 MG
  4. LITHIUM CARBONATE [Suspect]
     Indication: BIPOLAR DISORDER
     Dosage: 1500 MG
  5. ANTIDEPRESSANTS (NO INGREDIENTS/SUBSTANCES) [Suspect]
     Indication: BIPOLAR DISORDER
  6. TESTOSTERONE [Concomitant]
  7. SILDENAFIL CITRATE [Concomitant]
  8. ORAL ANTIDIABETICS (NO INGREDIENTS/SUBSTANCES) [Concomitant]
  9. INSULIN [Concomitant]

REACTIONS (14)
  - ABULIA [None]
  - APATHY [None]
  - ATTENTION DEFICIT/HYPERACTIVITY DISORDER [None]
  - DEPENDENT PERSONALITY DISORDER [None]
  - DISTURBANCE IN ATTENTION [None]
  - ERECTILE DYSFUNCTION [None]
  - FATIGUE [None]
  - IMPAIRED SELF-CARE [None]
  - IMPAIRED WORK ABILITY [None]
  - IRRITABILITY [None]
  - LOSS OF LIBIDO [None]
  - MENTAL DISORDER [None]
  - MENTAL IMPAIRMENT [None]
  - OBESITY [None]
